FAERS Safety Report 21805816 (Version 3)
Quarter: 2023Q2

REPORT INFORMATION
  Report Type: Spontaneous
  Country: CO (occurrence: CO)
  Receive Date: 20230102
  Receipt Date: 20230621
  Transmission Date: 20230722
  Serious: Yes (Other)
  Sender: FDA-Public Use
  Company Number: CO-VIIV HEALTHCARE LIMITED-CO2022AMR194724

PATIENT

DRUGS (1)
  1. DOVATO [Suspect]
     Active Substance: DOLUTEGRAVIR SODIUM\LAMIVUDINE
     Indication: HIV infection
     Dosage: 1 DF, QD EVERY 24 HOURS

REACTIONS (7)
  - Nephrolithiasis [Not Recovered/Not Resolved]
  - Headache [Recovered/Resolved]
  - Testicular disorder [Not Recovered/Not Resolved]
  - Liver disorder [Not Recovered/Not Resolved]
  - Malaise [Unknown]
  - Penile dermatitis [Not Recovered/Not Resolved]
  - Tachycardia [Recovered/Resolved]
